FAERS Safety Report 6536978-X (Version None)
Quarter: 2010Q1

REPORT INFORMATION
  Report Type: 
  Country: None (occurrence: None)
  Receive Date: 20100107
  Receipt Date: 20081217
  Transmission Date: 20100710
  Serious: Yes (Hospitalization, Other)
  Sender: FDA-Public Use
  Company Number: 2008AP003596

PATIENT
  Age: 80 Year
  Sex: Male

DRUGS (8)
  1. ALBUTEROL SULFATE [Suspect]
     Dosage: INH
     Route: 055
  2. LEVALBUTEROL HCL [Suspect]
     Dosage: INH
     Route: 055
  3. COMBIVENT [Concomitant]
  4. FELODIPINE [Concomitant]
  5. ASPIRIN [Concomitant]
  6. PREDNISONE [Concomitant]
  7. GATIFLOXACIN [Concomitant]
  8. IPRATROPIUM [Concomitant]

REACTIONS (4)
  - BRONCHOSPASM PARADOXICAL [None]
  - DYSPNOEA [None]
  - OXYGEN SATURATION DECREASED [None]
  - TACHYPNOEA [None]
